FAERS Safety Report 11090311 (Version 1)
Quarter: 2015Q2

REPORT INFORMATION
  Report Type: Spontaneous
  Country: GB (occurrence: GB)
  Receive Date: 20150505
  Receipt Date: 20150505
  Transmission Date: 20150821
  Serious: Yes (Disabling)
  Sender: FDA-Public Use
  Company Number: GB-TEVA-559875ACC

PATIENT
  Age: 68 Year
  Sex: Female
  Weight: 75 kg

DRUGS (9)
  1. CO-AMOXICLAV [Concomitant]
     Active Substance: AMOXICILLIN\CLAVULANIC ACID
     Dosage: 3 DOSAGE FORMS DAILY;
     Dates: start: 20150417
  2. CETIRIZINE [Suspect]
     Active Substance: CETIRIZINE HYDROCHLORIDE
     Dates: start: 20150409
  3. ADCAL [Concomitant]
     Dosage: 4 DOSAGE FORMS DAILY;
     Dates: start: 20140130
  4. TAMOXIFEN [Concomitant]
     Active Substance: TAMOXIFEN
     Dosage: USE AS DIRECTED
     Dates: start: 20150305
  5. HYPROMELLOSE [Concomitant]
     Active Substance: HYPROMELLOSES
     Dosage: ONE DROP AS NEEDED TO BE TAKEN THREE TIMES DAILY.
     Dates: start: 20150415
  6. NASONEX [Concomitant]
     Active Substance: MOMETASONE FUROATE
     Dosage: 4 DOSAGE FORMS DAILY; 4 DOSAGE FORMS, 2 PUFFS IN EACH NOSTRIL
     Route: 045
     Dates: start: 20140130
  7. BENDROFLUMETHIAZIDE [Concomitant]
     Active Substance: BENDROFLUMETHIAZIDE
     Dosage: 1 DOSAGE FORMS DAILY; 1 DOSAGE FORMS, IN MORNING
     Dates: start: 20140826
  8. OTRIVINE [Concomitant]
     Dosage: 3 GTT DAILY;
     Dates: start: 20150310, end: 20150317
  9. SIMVASTATIN. [Concomitant]
     Active Substance: SIMVASTATIN
     Dosage: 1 DOSAGE FORMS DAILY; 1 DOSAGE FORMS, AT NIGHT
     Dates: start: 20140130

REACTIONS (1)
  - Sedation [Recovered/Resolved]

NARRATIVE: CASE EVENT DATE: 20150420
